FAERS Safety Report 6218770-9 (Version None)
Quarter: 2009Q2

REPORT INFORMATION
  Report Type: 
  Country: None (occurrence: None)
  Receive Date: 20090608
  Receipt Date: 20090525
  Transmission Date: 20091009
  Serious: Yes (Death, Other)
  Sender: FDA-Public Use
  Company Number: SE-ELI_LILLY_AND_COMPANY-SE200905005762

PATIENT
  Age: 83 Year
  Sex: Female

DRUGS (16)
  1. ZYPREXA [Suspect]
     Indication: DELUSIONAL DISORDER, PERSECUTORY TYPE
     Dosage: 5 MG, DAILY (1/D)
     Route: 048
     Dates: start: 19980303
  2. HEMINEVRIN [Concomitant]
  3. BEHEPAN [Concomitant]
  4. SOBRIL [Concomitant]
  5. EFFORTIL [Concomitant]
  6. IMPUGAN [Concomitant]
  7. NOLVADEX [Concomitant]
  8. EMGESAN [Concomitant]
  9. KALCITENA [Concomitant]
  10. TROMBYL [Concomitant]
  11. ACETYLCYSTEINE [Concomitant]
  12. RISPERDAL [Concomitant]
  13. DUPHALAC [Concomitant]
  14. REMERON [Concomitant]
  15. SPIRONOLAKTON [Concomitant]
  16. KALIUM [Concomitant]

REACTIONS (2)
  - DEATH [None]
  - DEEP VEIN THROMBOSIS [None]
